FAERS Safety Report 7084781-7 (Version None)
Quarter: 2010Q4

REPORT INFORMATION
  Report Type: 
  Country: None (occurrence: None)
  Receive Date: 20101105
  Receipt Date: 20101102
  Transmission Date: 20110411
  Serious: Yes (Hospitalization)
  Sender: FDA-Public Use
  Company Number: US-BIOGENIDEC-2010BI037996

PATIENT
  Age: 57 Year
  Sex: Female
  Weight: 85 kg

DRUGS (11)
  1. TYSABRI [Suspect]
     Indication: MULTIPLE SCLEROSIS
     Route: 042
     Dates: start: 20091015
  2. IBUPROFEN [Concomitant]
     Indication: HEADACHE
     Route: 048
  3. IBUPROFEN [Concomitant]
     Indication: PAIN
     Route: 048
  4. ACETAMINOPHEN [Concomitant]
     Indication: HEADACHE
     Route: 048
  5. ACETAMINOPHEN [Concomitant]
     Indication: PAIN
     Route: 048
  6. AMBIEN [Concomitant]
     Route: 048
  7. ZOLOFT [Concomitant]
     Route: 048
  8. SIMVASTATIN [Concomitant]
     Route: 048
  9. CALTRATE [Concomitant]
     Route: 048
  10. VITAMIN D [Concomitant]
     Route: 048
  11. MULTI-VITAMIN [Concomitant]
     Route: 048

REACTIONS (1)
  - THYROID NEOPLASM [None]
